FAERS Safety Report 21108403 (Version 1)
Quarter: 2022Q3

REPORT INFORMATION
  Report Type: Spontaneous
  Country: US (occurrence: US)
  Receive Date: 20220721
  Receipt Date: 20220721
  Transmission Date: 20221027
  Serious: Yes (Other)
  Sender: FDA-Public Use
  Company Number: US-SUN PHARMACEUTICAL INDUSTRIES LTD-2022R1-344757

PATIENT
  Age: 70 Year
  Sex: Female

DRUGS (1)
  1. LATANOPROST [Suspect]
     Active Substance: LATANOPROST
     Indication: Macular hole
     Dosage: 0.005 PERCENT, BID
     Route: 061

REACTIONS (2)
  - Cystoid macular oedema [Recovering/Resolving]
  - Product use in unapproved indication [Unknown]
